FAERS Safety Report 10562308 (Version 1)
Quarter: 2014Q4

REPORT INFORMATION
  Report Type: Spontaneous
  Country: US (occurrence: None)
  Receive Date: 20141103
  Receipt Date: 20141103
  Transmission Date: 20150529
  Serious: Yes (Hospitalization)
  Sender: FDA-Public Use
  Company Number: None

PATIENT
  Age: 63 Year
  Sex: Male

DRUGS (14)
  1. ATORVASTATIN [Concomitant]
     Active Substance: ATORVASTATIN
  2. HYDRALAZINE [Concomitant]
     Active Substance: HYDRALAZINE HYDROCHLORIDE
  3. ASPIRIN. [Concomitant]
     Active Substance: ASPIRIN
  4. FUROSEMIDE. [Concomitant]
     Active Substance: FUROSEMIDE
  5. METOPROLOL [Concomitant]
     Active Substance: METOPROLOL
  6. NIFEDIPINE. [Concomitant]
     Active Substance: NIFEDIPINE
  7. LOSARTAN [Concomitant]
     Active Substance: LOSARTAN
  8. LEVOFLOXACIN. [Suspect]
     Active Substance: LEVOFLOXACIN
     Indication: INFECTION
     Route: 048
     Dates: end: 20140915
  9. LINEZOLID. [Concomitant]
     Active Substance: LINEZOLID
  10. METRONIDAZOLE. [Concomitant]
     Active Substance: METRONIDAZOLE
  11. TACROLIMUS. [Concomitant]
     Active Substance: TACROLIMUS
  12. ALLOPURINOL. [Concomitant]
     Active Substance: ALLOPURINOL
  13. MYCOPHENOLATE [Concomitant]
     Active Substance: MYCOPHENOLIC ACID
  14. TRAZODONE [Concomitant]
     Active Substance: TRAZODONE HYDROCHLORIDE

REACTIONS (6)
  - Chills [None]
  - Frequent bowel movements [None]
  - Pyrexia [None]
  - Myalgia [None]
  - Bone marrow failure [None]
  - Haemolytic anaemia [None]

NARRATIVE: CASE EVENT DATE: 20140915
